FAERS Safety Report 5407923-5 (Version None)
Quarter: 2007Q3

REPORT INFORMATION
  Report Type: 
  Country: None (occurrence: None)
  Receive Date: 20070803
  Receipt Date: 20070724
  Transmission Date: 20080115
  Serious: Yes (Hospitalization)
  Sender: FDA-Public Use
  Company Number: 2007SP002593

PATIENT
  Age: 86 Year
  Sex: Female
  Weight: 47.6277 kg

DRUGS (6)
  1. XOPENEX [Suspect]
     Indication: CHRONIC OBSTRUCTIVE PULMONARY DISEASE
     Dosage: 1.25 MG; INHALATION
     Route: 055
     Dates: start: 20061201, end: 20070401
  2. TIOTROPIUM [Concomitant]
  3. PULMICORT [Concomitant]
  4. OXYGEN [Concomitant]
  5. LISINOPRIL [Concomitant]
  6. LEVOTHYROXINE SODIUM [Concomitant]

REACTIONS (4)
  - BLOOD SODIUM DECREASED [None]
  - ILL-DEFINED DISORDER [None]
  - RASH [None]
  - UNEVALUABLE EVENT [None]
